FAERS Safety Report 20084947 (Version 1)
Quarter: 2021Q4

REPORT INFORMATION
  Report Type: Other
  Country: US (occurrence: None)
  Receive Date: 20211118
  Receipt Date: 20211118
  Transmission Date: 20220303
  Serious: Yes (Other)
  Sender: FDA-Public Use
  Company Number: US-ROCHE-2958565

PATIENT
  Sex: Female

DRUGS (19)
  1. XOLAIR [Suspect]
     Active Substance: OMALIZUMAB
     Indication: Chronic spontaneous urticaria
     Dosage: INJECT 300MG SUBCUTANEOUSLY EVERY 4 WEEK(S)
     Route: 058
  2. XOLAIR [Suspect]
     Active Substance: OMALIZUMAB
  3. XOLAIR [Suspect]
     Active Substance: OMALIZUMAB
  4. EPINEPHRINE [Concomitant]
     Active Substance: EPINEPHRINE
     Indication: Hypersensitivity
     Dosage: INJECT TO UPPAR OUTER THIGH IN CASE OF SEVERE ALLERGIES REACTION
  5. HYDROXYZINE HYDROCHLORIDE [Concomitant]
     Active Substance: HYDROXYZINE HYDROCHLORIDE
     Dosage: 1-4 DAILY PO
     Route: 048
  6. PREDNISOLONE [Concomitant]
     Active Substance: PREDNISOLONE
     Dosage: 8 TABS PO X 3 DAYS, 6 TABS X 3 DAYS, 3TAB X 3DAYS
     Route: 048
  7. ALPHA LIPOIC ACID [Concomitant]
     Active Substance: .ALPHA.-LIPOIC ACID
  8. BOTOX [Concomitant]
     Active Substance: ONABOTULINUMTOXINA
     Dosage: 100 UNIT VIAL
  9. BCO [Concomitant]
  10. CETIRIZINE HYDROCHLORIDE [Concomitant]
     Active Substance: CETIRIZINE HYDROCHLORIDE
     Route: 048
  11. CROMOLYN [Concomitant]
     Active Substance: CROMOLYN
     Dosage: 20MG/2ML NSL SOLUTION
  12. CROMOLYN [Concomitant]
     Active Substance: CROMOLYN
     Dosage: 4% EYE DROP
  13. MONTELUKAST [Concomitant]
     Active Substance: MONTELUKAST SODIUM
  14. ACETYLCYSTEINE [Concomitant]
     Active Substance: ACETYLCYSTEINE
  15. PYRIDOSTIGMINE BROMIDE [Concomitant]
     Active Substance: PYRIDOSTIGMINE BROMIDE
     Dosage: 30 MG IN AM THEN 15 MG TID
  16. QUERCETIN DIHYDRATE [Concomitant]
     Active Substance: QUERCETIN DIHYDRATE
  17. VITAMIN C [Concomitant]
     Active Substance: ASCORBIC ACID
  18. MAGNESIUM [Concomitant]
     Active Substance: MAGNESIUM
  19. CELLCEPT [Concomitant]
     Active Substance: MYCOPHENOLATE MOFETIL\MYCOPHENOLATE MOFETIL HYDROCHLORIDE

REACTIONS (1)
  - Anaphylactic reaction [Unknown]
